FAERS Safety Report 4569125-4 (Version None)
Quarter: 2005Q1

REPORT INFORMATION
  Report Type: 
  Country: None (occurrence: None)
  Receive Date: 20050126
  Receipt Date: 20050126
  Transmission Date: 20050727
  Serious: Yes (Other)
  Sender: FDA-Public Use
  Company Number: None

PATIENT
  Sex: Female
  Weight: 68.7653 kg

DRUGS (6)
  1. NIFEDIPINE [Suspect]
     Indication: HYPERTENSION
     Dosage: 30 MG DAILY PO
     Route: 048
     Dates: start: 20041101
  2. NIFEDIPINE [Suspect]
     Indication: HYPERTROPHIC OBSTRUCTIVE CARDIOMYOPATHY
     Dosage: 30 MG DAILY PO
     Route: 048
     Dates: start: 20041101
  3. INDERAL [Concomitant]
  4. PRILOSEC [Concomitant]
  5. ENALAPRIL MALEATE [Concomitant]
  6. HYDROCHLOROTHIAZIDE [Concomitant]

REACTIONS (2)
  - BLOOD PRESSURE INADEQUATELY CONTROLLED [None]
  - PHARMACEUTICAL PRODUCT COMPLAINT [None]
